FAERS Safety Report 5079202-X (Version None)
Quarter: 2006Q3

REPORT INFORMATION
  Report Type: 
  Country: None (occurrence: None)
  Receive Date: 20060809
  Receipt Date: 20060801
  Transmission Date: 20061208
  Serious: Yes (Other)
  Sender: FDA-Public Use
  Company Number: 2006094397

PATIENT
  Sex: Female

DRUGS (1)
  1. NEURONTIN [Suspect]
     Indication: DRUG USE FOR UNKNOWN INDICATION
     Dosage: 100 M G

REACTIONS (4)
  - BURNS THIRD DEGREE [None]
  - CONVULSION [None]
  - PHARMACEUTICAL PRODUCT COMPLAINT [None]
  - POOR QUALITY DRUG ADMINISTERED [None]
